FAERS Safety Report 11575715 (Version 1)
Quarter: 2015Q3

REPORT INFORMATION
  Report Type: Other
  Country: US (occurrence: US)
  Receive Date: 20150930
  Receipt Date: 20150930
  Transmission Date: 20151125
  Serious: Yes (Hospitalization, Other)
  Sender: FDA-Public Use
  Company Number: US-SHIRE-US201511913

PATIENT
  Sex: Female

DRUGS (1)
  1. VYVANSE [Suspect]
     Active Substance: LISDEXAMFETAMINE DIMESYLATE
     Indication: PRODUCT USED FOR UNKNOWN INDICATION
     Dosage: 70 MG (40 MG + 30 MG CAPSULE), 1X/DAY:QD
     Route: 048

REACTIONS (3)
  - Panic attack [Unknown]
  - Drug dose omission [Unknown]
  - Seizure [Unknown]
